FAERS Safety Report 16871652 (Version 2)
Quarter: 2020Q1

REPORT INFORMATION
  Report Type: Spontaneous
  Country: US (occurrence: US)
  Receive Date: 20191001
  Receipt Date: 20200204
  Transmission Date: 20200409
  Serious: No
  Sender: FDA-Public Use
  Company Number: US-GLAXOSMITHKLINE-US2019173664

PATIENT
  Sex: Female

DRUGS (3)
  1. NUCALA [Suspect]
     Active Substance: MEPOLIZUMAB
     Indication: ASTHMA
     Dosage: UNK
     Route: 058
     Dates: start: 201902, end: 20190503
  2. IBUPROFEN. [Suspect]
     Active Substance: IBUPROFEN
     Indication: MIGRAINE
     Dosage: UNK
     Route: 065
  3. NUCALA [Suspect]
     Active Substance: MEPOLIZUMAB
     Dosage: UNK
     Route: 058
     Dates: start: 201910

REACTIONS (11)
  - Insomnia [Unknown]
  - Condition aggravated [Unknown]
  - Muscle spasms [Recovered/Resolved]
  - Cough [Unknown]
  - Pain in extremity [Not Recovered/Not Resolved]
  - Arthritis [Unknown]
  - Asthma [Unknown]
  - Gait disturbance [Unknown]
  - Eosinophil count increased [Unknown]
  - Dyspnoea [Unknown]
  - Wheezing [Unknown]
